FAERS Safety Report 7942596-9 (Version None)
Quarter: 2011Q4

REPORT INFORMATION
  Report Type: 
  Country: None (occurrence: None)
  Receive Date: 20111128
  Receipt Date: 20111114
  Transmission Date: 20120403
  Serious: Yes (Hospitalization)
  Sender: FDA-Public Use
  Company Number: DE-GLAXOSMITHKLINE-D0072312A

PATIENT
  Sex: Female

DRUGS (13)
  1. TORSEMIDE [Concomitant]
     Dosage: 10MG PER DAY
     Route: 048
  2. ANAFRANIL [Concomitant]
     Dosage: 37.5MG PER DAY
     Route: 048
  3. RAMIPRIL [Concomitant]
     Dosage: 5MG PER DAY
     Route: 048
  4. SPIRIVA [Concomitant]
     Dosage: 18UG TWICE PER DAY
     Route: 055
  5. REQUIP [Suspect]
     Indication: PARKINSON'S DISEASE
     Dosage: 20MG PER DAY
     Route: 048
     Dates: start: 20101101, end: 20110801
  6. MADOPAR [Concomitant]
     Dosage: 125MG SIX TIMES PER DAY
     Route: 048
  7. ALDACTONE [Concomitant]
     Dosage: 50MG PER DAY
     Route: 048
  8. VIANI FORTE [Concomitant]
     Route: 055
     Dates: start: 20110301
  9. AZILECT [Concomitant]
     Dosage: 1MG PER DAY
     Route: 048
  10. MOTILIUM [Concomitant]
     Dosage: 10MG PER DAY
     Route: 048
  11. LEVOTHYROXINE SODIUM [Concomitant]
     Dosage: 175UG PER DAY
     Route: 048
  12. BERODUAL [Concomitant]
     Dosage: 140UG TWICE PER DAY
     Route: 055
  13. OMEPRAZOLE [Concomitant]
     Dosage: 40MG PER DAY
     Route: 048

REACTIONS (44)
  - ORAL CANDIDIASIS [None]
  - BACK PAIN [None]
  - WEIGHT INCREASED [None]
  - HYPERLIPIDAEMIA [None]
  - CONSTIPATION [None]
  - FATIGUE [None]
  - GASTROOESOPHAGEAL REFLUX DISEASE [None]
  - HYPOSMIA [None]
  - CHRONIC OBSTRUCTIVE PULMONARY DISEASE [None]
  - ASTHMA [None]
  - LARYNGITIS [None]
  - PHARYNGITIS [None]
  - IMMOBILE [None]
  - RESPIRATORY GAS EXCHANGE DISORDER [None]
  - ACUTE MYOCARDIAL INFARCTION [None]
  - DYSPHONIA [None]
  - MASKED FACIES [None]
  - ALVEOLITIS ALLERGIC [None]
  - LUNG DISORDER [None]
  - VOMITING [None]
  - RENAL FAILURE CHRONIC [None]
  - PNEUMONITIS [None]
  - DYSPHAGIA [None]
  - STRIDOR [None]
  - PULMONARY OEDEMA [None]
  - PRODUCTIVE COUGH [None]
  - HYPOXIA [None]
  - ACUTE CORONARY SYNDROME [None]
  - HYPERTENSIVE HEART DISEASE [None]
  - SLEEP APNOEA SYNDROME [None]
  - NIGHTMARE [None]
  - DYSPNOEA [None]
  - OEDEMA PERIPHERAL [None]
  - PARAESTHESIA [None]
  - NAUSEA [None]
  - DYSPNOEA EXERTIONAL [None]
  - EPISTAXIS [None]
  - HYPERTENSION [None]
  - STAPHYLOCOCCAL INFECTION [None]
  - CYANOSIS [None]
  - GASTRITIS EROSIVE [None]
  - VERTIGO [None]
  - OBESITY [None]
  - CUSHINGOID [None]
